FAERS Safety Report 7259275-6 (Version None)
Quarter: 2011Q1

REPORT INFORMATION
  Report Type: 
  Country: None (occurrence: None)
  Receive Date: 20110129
  Receipt Date: 20100730
  Transmission Date: 20110831
  Serious: No
  Sender: FDA-Public Use
  Company Number: US-ABBOTT-10P-163-0660877-00

PATIENT
  Age: 75 Year
  Sex: Female

DRUGS (23)
  1. DIOVAN WITH HCTZ [Concomitant]
     Indication: HYPERTENSION
  2. VIT D [Concomitant]
     Indication: PRODUCT USED FOR UNKNOWN INDICATION
  3. SINGULAIR [Concomitant]
     Indication: ASTHMA
  4. ZYRTEC [Concomitant]
     Indication: HYPERSENSITIVITY
  5. METAMUCIL-2 [Concomitant]
     Indication: PRODUCT USED FOR UNKNOWN INDICATION
  6. ADVAIR DISKUS 100/50 [Concomitant]
     Indication: PRODUCT USED FOR UNKNOWN INDICATION
  7. SINGULAIR [Concomitant]
     Indication: HYPERSENSITIVITY
  8. CENTRUM SILVER [Concomitant]
     Indication: PRODUCT USED FOR UNKNOWN INDICATION
  9. MULTIVITAMIN [Concomitant]
     Indication: PRODUCT USED FOR UNKNOWN INDICATION
  10. ASPIRIN [Concomitant]
     Indication: PRODUCT USED FOR UNKNOWN INDICATION
  11. HUMIRA [Suspect]
     Indication: RHEUMATOID ARTHRITIS
     Dates: start: 20100702
  12. PREDNISONE [Concomitant]
     Indication: PRODUCT USED FOR UNKNOWN INDICATION
  13. CYCLOBENZAPRINE [Concomitant]
     Indication: MUSCLE RELAXANT THERAPY
  14. FISH OIL [Concomitant]
     Indication: PRODUCT USED FOR UNKNOWN INDICATION
  15. OMEPRAZOLE [Concomitant]
     Indication: GASTRIC DISORDER
  16. ZOCOR [Concomitant]
     Indication: BLOOD CHOLESTEROL
  17. CYMBALTA [Concomitant]
     Indication: PRODUCT USED FOR UNKNOWN INDICATION
  18. VITAMIN B-12 [Concomitant]
     Indication: PRODUCT USED FOR UNKNOWN INDICATION
  19. K-DUR [Concomitant]
     Indication: PRODUCT USED FOR UNKNOWN INDICATION
  20. LYRICA [Concomitant]
     Indication: PRODUCT USED FOR UNKNOWN INDICATION
  21. HUMALOG [Concomitant]
     Indication: DIABETES MELLITUS
  22. CITRICAL [Concomitant]
     Indication: PRODUCT USED FOR UNKNOWN INDICATION
  23. LEVEMIR [Concomitant]
     Indication: DIABETES MELLITUS

REACTIONS (2)
  - PAIN [None]
  - JOINT SWELLING [None]
